FAERS Safety Report 25048600 (Version 1)
Quarter: 2025Q1

REPORT INFORMATION
  Report Type: Spontaneous
  Country: US (occurrence: US)
  Receive Date: 20250307
  Receipt Date: 20250307
  Transmission Date: 20250408
  Serious: Yes (Hospitalization, Other)
  Sender: Haleon PLC
  Company Number: US-HALEON-2231365

PATIENT
  Age: 55 Year
  Sex: Female

DRUGS (4)
  1. IBUPROFEN [Suspect]
     Active Substance: IBUPROFEN
     Indication: Headache
  2. IBUPROFEN [Suspect]
     Active Substance: IBUPROFEN
     Indication: Ear pain
  3. AMOXICILLIN [Concomitant]
     Active Substance: AMOXICILLIN
     Indication: Otitis media
  4. OFLOXACIN [Concomitant]
     Active Substance: OFLOXACIN
     Indication: Otitis media

REACTIONS (4)
  - Meningitis aseptic [Unknown]
  - Confusional state [Recovering/Resolving]
  - Hemiparesis [Recovered/Resolved]
  - Lethargy [Unknown]
